FAERS Safety Report 14640283 (Version 3)
Quarter: 2022Q2

REPORT INFORMATION
  Report Type: Spontaneous
  Country: FR (occurrence: FR)
  Receive Date: 20180315
  Receipt Date: 20220523
  Transmission Date: 20220721
  Serious: Yes (Hospitalization, Other)
  Sender: FDA-Public Use
  Company Number: None

PATIENT
  Age: 45 Year
  Sex: Female
  Weight: 95 kg

DRUGS (8)
  1. IBUPROFEN [Suspect]
     Active Substance: IBUPROFEN
     Indication: Intentional overdose
     Dosage: UNK (NP)
     Route: 048
     Dates: start: 20171127, end: 20171127
  2. ACETAMINOPHEN [Suspect]
     Active Substance: ACETAMINOPHEN
     Indication: Intentional overdose
     Dosage: 42 G
     Route: 048
     Dates: start: 20171127, end: 20171127
  3. ACETAMINOPHEN [Suspect]
     Active Substance: ACETAMINOPHEN
     Indication: Pain
     Dosage: UNK (POSOLOGIE NON PRECISEE)
     Route: 048
     Dates: end: 20210910
  4. DOXYCYCLINE [Suspect]
     Active Substance: DOXYCYCLINE
     Indication: Cyst
     Dosage: UNK
     Route: 048
     Dates: start: 201711, end: 20171127
  5. AMOXICILLIN [Suspect]
     Active Substance: AMOXICILLIN
     Indication: Intentional overdose
     Dosage: UNK (1 BOITE)
     Route: 048
     Dates: start: 20171127, end: 20171127
  6. TRIMEBUTINE [Suspect]
     Active Substance: TRIMEBUTINE
     Indication: Gastrointestinal motility disorder
     Dosage: UNK (POSOLOGIE NON PRECISEE)
     Route: 048
     Dates: start: 20210906, end: 20210910
  7. METFORMIN HYDROCHLORIDE [Suspect]
     Active Substance: METFORMIN HYDROCHLORIDE
     Indication: Diabetes mellitus
     Dosage: UNK (POSOLOGIE NON PRECISEE)
     Route: 048
     Dates: end: 20210910
  8. EFFEXOR [Suspect]
     Active Substance: VENLAFAXINE HYDROCHLORIDE
     Indication: Depression
     Dosage: UNK
     Route: 048
     Dates: start: 20171127, end: 20171127

REACTIONS (2)
  - Acute generalised exanthematous pustulosis [Recovered/Resolved]
  - Acute generalised exanthematous pustulosis [Recovered/Resolved]

NARRATIVE: CASE EVENT DATE: 20171129
